FAERS Safety Report 6430462-X (Version None)
Quarter: 2009Q4

REPORT INFORMATION
  Report Type: 
  Country: None (occurrence: None)
  Receive Date: 20091106
  Receipt Date: 20091030
  Transmission Date: 20100525
  Serious: Yes (Hospitalization)
  Sender: FDA-Public Use
  Company Number: US-ELI_LILLY_AND_COMPANY-US200910008038

PATIENT
  Sex: Female

DRUGS (5)
  1. HUMALOG [Suspect]
     Dosage: UNK, UNK
     Dates: start: 19890101
  2. BENICAR [Concomitant]
  3. ZETIA [Concomitant]
  4. TRAMADOL HCL [Concomitant]
  5. LANTUS [Concomitant]

REACTIONS (4)
  - CARDIAC DISORDER [None]
  - MEMORY IMPAIRMENT [None]
  - VISION BLURRED [None]
  - VISUAL ACUITY REDUCED [None]
